FAERS Safety Report 10198216 (Version 2)
Quarter: 2014Q2

REPORT INFORMATION
  Report Type: Spontaneous
  Country: US (occurrence: US)
  Receive Date: 20140527
  Receipt Date: 20140606
  Transmission Date: 20141212
  Serious: Yes (Death, Hospitalization, Other)
  Sender: FDA-Public Use
  Company Number: US-AMGEN-USASP2014037712

PATIENT
  Age: 63 Year
  Sex: Female
  Weight: 55.33 kg

DRUGS (30)
  1. XGEVA [Suspect]
     Indication: METASTASES TO BONE
     Dosage: 120 MG, QMO
     Route: 058
     Dates: start: 20130624
  2. NEULASTA [Suspect]
     Indication: WHITE BLOOD CELL COUNT DECREASED
     Dosage: 6 MG, Q2WK
     Route: 058
     Dates: start: 20130226
  3. ARANESP [Suspect]
     Indication: HAEMOGLOBIN DECREASED
     Dosage: 500 MUG, QMO
     Route: 058
     Dates: start: 20130708
  4. CLONAZEPAM [Concomitant]
     Dosage: 2 MG, QHS
     Route: 048
  5. ENOXAPARIN [Concomitant]
     Dosage: 40 MG/0.4 ML, UNK
     Route: 058
  6. FLUPHENAZINE [Concomitant]
     Dosage: 2.5 MG/0.25 TABLET, UNK
     Route: 048
  7. IOPAMIDOL [Concomitant]
     Dosage: 100 ML, AS NECESSARY, PUSH ON CALL
     Route: 042
  8. ALBUTEROL                          /00139501/ [Concomitant]
     Dosage: 3 ML, Q4H
  9. IPRATROPIUM [Concomitant]
     Dosage: 3 ML, Q4H
  10. METHYLPREDNISOLONE [Concomitant]
     Dosage: 40 MG/ML, Q8H
     Route: 042
  11. OMEPRAZOLE [Concomitant]
     Dosage: 20 MG, QD
     Route: 048
  12. OXYCODONE [Concomitant]
     Dosage: 60 MG PER 3 TABLETS, BID
     Route: 048
  13. POLYCARBOPHIL [Concomitant]
     Dosage: 625 MG PER 1 TABLET, UNK
     Route: 048
  14. ZOLPIDEM [Concomitant]
     Dosage: 10 MG, 2 TABLETS QHS
     Route: 048
  15. ALOXI [Concomitant]
     Dosage: 0.25 MG/5 ML, ONCE.
     Route: 042
  16. AMBIEN [Concomitant]
     Dosage: 10 MG 2 TABLETS, UNK
     Route: 048
  17. ACETAMINOPHEN [Concomitant]
     Dosage: 650 MG, Q6H, AS NECESSARY
     Route: 048
  18. ALBUTEROL                          /00139501/ [Concomitant]
     Indication: WHEEZING
     Dosage: 2.5 MG/3ML, Q2H, AS NECESSARY
  19. GEMCITABINE [Concomitant]
     Dosage: 1600 MG, 42.1 ML, 584.2 ML/HR, ONCE
     Route: 042
  20. MAGNESIUM HYDROXIDE [Concomitant]
     Indication: CONSTIPATION
     Dosage: 30 ML, 8 % ORAL SUSPENSION, QHS, AS NECESSARY
     Route: 048
  21. MORPHINE [Concomitant]
     Indication: PAIN
     Dosage: 2 TO 4 MG, PUSH, AS NECESSARY
     Route: 042
  22. ONDANSETRON [Concomitant]
     Indication: NAUSEA
     Dosage: 4 MG/2ML, Q6H, AS NECESSARY
     Route: 042
  23. ONDANSETRON [Concomitant]
     Indication: VOMITING
  24. BACTRIM [Concomitant]
     Indication: PNEUMONIA
     Dosage: 1 TABLET, BID
     Route: 048
  25. DUONEB [Concomitant]
     Dosage: 0.5 MG/2.5 MG/3 ML, UNK
  26. FIBER LAXATIVE [Concomitant]
     Dosage: UNK UNK, QD, AS NEEDED
     Route: 048
  27. VENTOLIN HFA [Concomitant]
     Dosage: 1 PUFF, QID, AS NECESSARY
  28. IBUPROFEN [Concomitant]
     Indication: PAIN
     Dosage: 800 MG, Q8H, AS NECESSARY
     Route: 048
  29. AMOXICILLIN [Concomitant]
     Indication: PNEUMONIA
  30. NICOTINE [Concomitant]
     Dosage: 1 TRANSDERMAL PATCH
     Route: 062

REACTIONS (11)
  - Malignant neoplasm progression [Fatal]
  - Chronic obstructive pulmonary disease [Unknown]
  - Anaemia [Unknown]
  - Pericardial effusion [Unknown]
  - Acute respiratory failure [Recovered/Resolved]
  - Cardiomegaly [Unknown]
  - Fibrin D dimer increased [Unknown]
  - Restlessness [Unknown]
  - Pneumonia [Unknown]
  - Dyspnoea [Recovered/Resolved]
  - Chest discomfort [Unknown]
